FAERS Safety Report 5474447-9 (Version None)
Quarter: 2007Q4

REPORT INFORMATION
  Report Type: 
  Country: None (occurrence: None)
  Receive Date: 20071002
  Receipt Date: 20070924
  Transmission Date: 20080405
  Serious: Yes (Hospitalization, Other)
  Sender: FDA-Public Use
  Company Number: PHEH2007US12584

PATIENT
  Age: 27 Year
  Sex: Female
  Weight: 54.421 kg

DRUGS (1)
  1. TRILEPTAL [Suspect]
     Indication: CONVULSION
     Dosage: 300 MG, BID
     Route: 048
     Dates: start: 20040101, end: 20070101

REACTIONS (8)
  - BLOOD SODIUM DECREASED [None]
  - DRUG EXPOSURE DURING PREGNANCY [None]
  - DRUG EXPOSURE VIA BREAST MILK [None]
  - GRAND MAL CONVULSION [None]
  - NORMAL NEWBORN [None]
  - PRE-ECLAMPSIA [None]
  - TREMOR [None]
  - WEIGHT DECREASED [None]
